FAERS Safety Report 6402366-X (Version None)
Quarter: 2009Q4

REPORT INFORMATION
  Report Type: 
  Country: None (occurrence: None)
  Receive Date: 20091015
  Receipt Date: 20091006
  Transmission Date: 20100525
  Serious: Yes (Death, Hospitalization)
  Sender: FDA-Public Use
  Company Number: US-ROCHE-652942

PATIENT
  Sex: Male
  Weight: 70.3 kg

DRUGS (8)
  1. CAPECITABINE [Suspect]
     Dosage: FREQUENCY REPORTED AS: 1500MG BID X 7 DAYS ON 7 DAYS OFF. TEMPORARILY DISCONTINUED
     Route: 048
     Dates: start: 20090706, end: 20090909
  2. OXALIPLATIN [Suspect]
     Dosage: DOSE REPORTED AS 153 (UNITS NOT PROVIDED) LAST DOSE RECEIVED ON 25 AUGUST 2009
     Route: 042
     Dates: start: 20090706
  3. LISINOPRIL [Concomitant]
  4. IMMODIUM [Concomitant]
  5. HYDROCHLOROTHIAZIDE [Concomitant]
  6. AMBIEN [Concomitant]
  7. ALOXI [Concomitant]
     Dosage: FREQUENCY: EACH REACTION
     Route: 042
     Dates: start: 20090706
  8. DEXAMETHASONE 0.5MG TAB [Concomitant]
     Dosage: FREQUENCY: EACH REACTION
     Route: 042
     Dates: start: 20090706

REACTIONS (3)
  - COLON CANCER [None]
  - DEEP VEIN THROMBOSIS [None]
  - LIVER DISORDER [None]
